FAERS Safety Report 5189270-2 (Version None)
Quarter: 2006Q4

REPORT INFORMATION
  Report Type: 
  Country: None (occurrence: None)
  Receive Date: 20061221
  Receipt Date: 20061008
  Transmission Date: 20070319
  Serious: No
  Sender: FDA-Public Use
  Company Number: US-AMGEN-US196258

PATIENT
  Sex: Female

DRUGS (1)
  1. ENBREL [Suspect]
     Indication: RHEUMATOID ARTHRITIS
     Route: 058
     Dates: start: 20060925

REACTIONS (5)
  - COUGH [None]
  - DYSPNOEA [None]
  - INJECTION SITE RASH [None]
  - LOWER RESPIRATORY TRACT INFECTION [None]
  - PULMONARY CONGESTION [None]
